FAERS Safety Report 14855977 (Version 1)
Quarter: 2018Q2

REPORT INFORMATION
  Report Type: Spontaneous
  Country: US (occurrence: US)
  Receive Date: 20180507
  Receipt Date: 20180507
  Transmission Date: 20180711
  Serious: Yes (Hospitalization, Other)
  Sender: FDA-Public Use
  Company Number: US-GLAXOSMITHKLINE-US2018079527

PATIENT
  Age: 88 Year
  Sex: Male

DRUGS (12)
  1. BREO ELLIPTA [Suspect]
     Active Substance: FLUTICASONE FUROATE\VILANTEROL TRIFENATATE
     Indication: CHRONIC OBSTRUCTIVE PULMONARY DISEASE
     Dosage: 1 PUFF(S), QD
     Dates: start: 201612
  2. BREO ELLIPTA [Suspect]
     Active Substance: FLUTICASONE FUROATE\VILANTEROL TRIFENATATE
     Indication: ASTHMA
  3. LEVOTHYROXINE. [Concomitant]
     Active Substance: LEVOTHYROXINE
  4. ASPIRIN 81 [Concomitant]
     Active Substance: ASPIRIN
  5. OMEPRAZOLE. [Concomitant]
     Active Substance: OMEPRAZOLE
  6. ELIQUIS [Concomitant]
     Active Substance: APIXABAN
  7. MULTAQ [Concomitant]
     Active Substance: DRONEDARONE
  8. PRAVASTATIN. [Concomitant]
     Active Substance: PRAVASTATIN
  9. LOSARTAN. [Concomitant]
     Active Substance: LOSARTAN
  10. PREDNISONE. [Concomitant]
     Active Substance: PREDNISONE
  11. COMBIVENT RESPULE [Concomitant]
  12. DOXAZOSIN [Concomitant]
     Active Substance: DOXAZOSIN\DOXAZOSIN MESYLATE

REACTIONS (2)
  - Pneumonia [Recovering/Resolving]
  - Respiratory disorder [Recovering/Resolving]

NARRATIVE: CASE EVENT DATE: 20180301
